FAERS Safety Report 4477438-X (Version None)
Quarter: 2004Q4

REPORT INFORMATION
  Report Type: 
  Country: None (occurrence: None)
  Receive Date: 20041008
  Receipt Date: 20040927
  Transmission Date: 20050328
  Serious: Yes (Life-Threatening, Disabling)
  Sender: FDA-Public Use
  Company Number: 2004-02084

PATIENT
  Age: 78 Year
  Sex: Male

DRUGS (5)
  1. IMMUCYST (BCG - IT (CONNAUGHT)), AVENTIS PASTEUR LTD., LOT NOT REP, I4 [Suspect]
     Indication: BLADDER CANCER
     Dosage: 81 MG (NR) B.IN., BLADDER
     Dates: start: 20040329, end: 20040426
  2. ETODOLAC [Suspect]
     Dosage: (200.0 MG, NR) P.O.
     Route: 048
     Dates: start: 20040407, end: 20040503
  3. PROPIVERINE HYDROCHLORIDE [Concomitant]
  4. RANITIDINE HYDROCHLORIDE [Concomitant]
  5. TEPRENONE [Concomitant]

REACTIONS (7)
  - ALANINE AMINOTRANSFERASE DECREASED [None]
  - HAEMOGLOBIN DECREASED [None]
  - PLATELET COUNT INCREASED [None]
  - PYREXIA [None]
  - RED BLOOD CELL COUNT DECREASED [None]
  - RENAL FAILURE ACUTE [None]
  - WHITE BLOOD CELL COUNT DECREASED [None]
